FAERS Safety Report 22650278 (Version 1)
Quarter: 2023Q2

REPORT INFORMATION
  Report Type: Spontaneous
  Country: US (occurrence: US)
  Receive Date: 20230628
  Receipt Date: 20230628
  Transmission Date: 20230722
  Serious: No
  Sender: FDA-Public Use
  Company Number: US-JNJFOC-20230235525

PATIENT
  Age: 21 Year
  Sex: Female

DRUGS (5)
  1. TYLENOL REGULAR STRENGTH [Suspect]
     Active Substance: ACETAMINOPHEN
     Indication: Migraine
     Dosage: REGULAR SIZE BOTTLE, OCCASIONALLY BIGGER BOTTLE, APPROX. 250 PILLS, RECEIVED IN FIRST, SECOND AND TH
     Route: 048
     Dates: start: 201306, end: 201403
  2. TYLENOL REGULAR STRENGTH [Suspect]
     Active Substance: ACETAMINOPHEN
     Dosage: REGULAR SIZE BOTTLE, OCCASIONALLY BIGGER BOTTLE, APPROX. 250 PILLS, RECEIVED IN FIRST, SECOND AND TH
     Route: 048
     Dates: start: 201306, end: 201403
  3. TYLENOL EXTRA STRENGTH [Suspect]
     Active Substance: ACETAMINOPHEN
     Indication: Product used for unknown indication
     Route: 065
     Dates: start: 201306, end: 201403
  4. TYLENOL [Suspect]
     Active Substance: ACETAMINOPHEN
     Indication: Infection
     Route: 048
     Dates: start: 201401, end: 201401
  5. ACETAMINOPHEN [Suspect]
     Active Substance: ACETAMINOPHEN
     Indication: Migraine
     Dosage: REGULAR SIZE BOTTLE, OCCASIONALLY BIGGER BOTTLE, APPROX. 250 PILLS, RECEIVED IN FIRST, SECOND AND TH
     Route: 048
     Dates: start: 201306, end: 201403

REACTIONS (1)
  - Exposure during pregnancy [Unknown]

NARRATIVE: CASE EVENT DATE: 20130601
